FAERS Safety Report 23722770 (Version 1)
Quarter: 2024Q2

REPORT INFORMATION
  Report Type: Spontaneous
  Country: CH (occurrence: CH)
  Receive Date: 20240409
  Receipt Date: 20240409
  Transmission Date: 20240716
  Serious: Yes (Hospitalization)
  Sender: FDA-Public Use
  Company Number: None

PATIENT
  Age: 78 Year
  Sex: Male
  Weight: 108 kg

DRUGS (8)
  1. ALDACTONE [Suspect]
     Active Substance: SPIRONOLACTONE
     Dosage: 25 MG, 1X/DAY
     Route: 048
     Dates: end: 20240129
  2. EDARBYCLOR [Suspect]
     Active Substance: AZILSARTAN KAMEDOXOMIL\CHLORTHALIDONE
     Dosage: 40 MG, 1X/DAY
     Route: 048
     Dates: end: 20240129
  3. LANTUS [Concomitant]
     Active Substance: INSULIN GLARGINE
     Dosage: 36 IU, 1X/DAY
     Route: 058
  4. GLICLAZIDE [Concomitant]
     Active Substance: GLICLAZIDE
     Dosage: 30 MG, 2X/DAY
     Route: 048
  5. JANUMET [Concomitant]
     Active Substance: METFORMIN HYDROCHLORIDE\SITAGLIPTIN PHOSPHATE
     Dosage: 50 MG, 2X/DAY
     Route: 048
  6. ASPIRIN [Concomitant]
     Active Substance: ASPIRIN
     Dosage: 100 MG, 1X/DAY
     Route: 048
  7. MOXONIDINE [Concomitant]
     Active Substance: MOXONIDINE
     Dosage: 0.4 MG, 1X/DAY
     Route: 048
  8. AMLODIPINE BESYLATE [Concomitant]
     Active Substance: AMLODIPINE BESYLATE
     Dosage: 10 MG, 1X/DAY
     Route: 048

REACTIONS (4)
  - Hyperkalaemia [Recovered/Resolved]
  - Acute kidney injury [Unknown]
  - Cardiac failure [Unknown]
  - Cardiorenal syndrome [Unknown]

NARRATIVE: CASE EVENT DATE: 20240129
